FAERS Safety Report 22635806 (Version 1)
Quarter: 2023Q2

REPORT INFORMATION
  Report Type: Spontaneous
  Country: PT (occurrence: PT)
  Receive Date: 20230623
  Receipt Date: 20230623
  Transmission Date: 20230721
  Serious: Yes (Hospitalization, Other)
  Sender: FDA-Public Use
  Company Number: PT-DSJP-DSE-2023-124878

PATIENT
  Age: 66 Year
  Sex: Female

DRUGS (1)
  1. OLMESARTAN MEDOXOMIL [Suspect]
     Active Substance: OLMESARTAN MEDOXOMIL
     Indication: Hypertension
     Dosage: UNK
     Route: 065

REACTIONS (14)
  - Generalised oedema [Unknown]
  - Non-scarring alopecia [Unknown]
  - Hypoalbuminaemia [Unknown]
  - Hypokalaemia [Unknown]
  - Hypomagnesaemia [Unknown]
  - Pleural effusion [Unknown]
  - Ascites [Unknown]
  - Leukopenia [Unknown]
  - Pericardial effusion [Unknown]
  - Protein-losing gastroenteropathy [Unknown]
  - Systemic lupus erythematosus [Unknown]
  - Lupus-like syndrome [Unknown]
  - Oedema peripheral [Unknown]
  - Hypotension [Unknown]
